FAERS Safety Report 11054942 (Version 2)
Quarter: 2015Q2

REPORT INFORMATION
  Report Type: Spontaneous
  Country: FR (occurrence: FR)
  Receive Date: 20150422
  Receipt Date: 20150528
  Transmission Date: 20150821
  Serious: Yes (Hospitalization)
  Sender: FDA-Public Use
  Company Number: FR-PFIZER INC-2015130452

PATIENT
  Age: 16 Year
  Sex: Male

DRUGS (3)
  1. KEPPRA [Concomitant]
     Active Substance: LEVETIRACETAM
     Indication: PROPHYLAXIS
     Dosage: UNK
     Dates: start: 201502, end: 201503
  2. NEURONTIN [Suspect]
     Active Substance: GABAPENTIN
     Dosage: 600 MG, 3X/DAY
     Route: 048
     Dates: start: 20150316, end: 20150325
  3. NEURONTIN [Suspect]
     Active Substance: GABAPENTIN
     Indication: PROPHYLAXIS
     Dosage: 400 MG, 3X/DAY
     Route: 048
     Dates: start: 20150314, end: 20150315

REACTIONS (2)
  - Pyrexia [Unknown]
  - Tachycardia [Unknown]

NARRATIVE: CASE EVENT DATE: 20150315
